FAERS Safety Report 8896264 (Version 1)
Quarter: 2012Q4

REPORT INFORMATION
  Report Type: Spontaneous
  Country: US (occurrence: None)
  Receive Date: 20121106
  Receipt Date: 20121106
  Transmission Date: 20130627
  Serious: Yes (Other)
  Sender: FDA-Public Use
  Company Number: None

PATIENT
  Age: 31 Year
  Sex: Female
  Weight: 81.65 kg

DRUGS (1)
  1. ADDERALL [Suspect]

REACTIONS (2)
  - Feeling abnormal [None]
  - Psychiatric symptom [None]
